FAERS Safety Report 23913426 (Version 2)
Quarter: 2024Q2

REPORT INFORMATION
  Report Type: Report from Study
  Country: JP (occurrence: JP)
  Receive Date: 20240529
  Receipt Date: 20240612
  Transmission Date: 20240716
  Serious: Yes (Hospitalization)
  Sender: FDA-Public Use
  Company Number: JP-ABBVIE-19K-087-2917462-00

PATIENT
  Age: 54 Year
  Sex: Female
  Weight: 61 kg

DRUGS (50)
  1. CARBIDOPA\LEVODOPA [Suspect]
     Active Substance: CARBIDOPA\LEVODOPA
     Indication: Parkinson^s disease
     Dosage: MD: 8 ML, CD: 1.7 ML/HR ? 16 HRS, ED: 2 ML/UNIT ? 5
     Route: 050
     Dates: start: 20190827, end: 20190914
  2. CARBIDOPA\LEVODOPA [Suspect]
     Active Substance: CARBIDOPA\LEVODOPA
     Dosage: MD: 8 ML, CD: 1.7 ML/HR ? 16 HRS, ED: 2 ML/UNIT ? 5
     Route: 050
     Dates: start: 20190917, end: 20191021
  3. CARBIDOPA\LEVODOPA [Suspect]
     Active Substance: CARBIDOPA\LEVODOPA
     Dosage: MD: 8 ML, CD: 1.7 ML/HR ? 16 HRS, ED: 3 ML/UNIT ? 5
     Route: 050
     Dates: start: 20191110, end: 20191120
  4. CARBIDOPA\LEVODOPA [Suspect]
     Active Substance: CARBIDOPA\LEVODOPA
     Dosage: MD: 8 ML, CD: 2.3 ML/HR ? 16 HRS, ED: 2 ML/UNIT ? 1
     Route: 050
     Dates: start: 20190708, end: 20190730
  5. CARBIDOPA\LEVODOPA [Suspect]
     Active Substance: CARBIDOPA\LEVODOPA
     Dosage: MD: 8 ML, CD: 2.1 ML/HR ? 16 HRS, ED: 2 ML/UNIT ? 1
     Route: 050
     Dates: start: 20190730, end: 20190816
  6. CARBIDOPA\LEVODOPA [Suspect]
     Active Substance: CARBIDOPA\LEVODOPA
     Dosage: MD: 8 ML, CD: 1.9 ML/HR ? 16 HRS, ED: 2 ML/UNIT ? 1
     Route: 050
     Dates: start: 20190816, end: 20190827
  7. CARBIDOPA\LEVODOPA [Suspect]
     Active Substance: CARBIDOPA\LEVODOPA
     Dosage: MD: 8 ML, CD: 1.7 ML/HR ? 16 HRS, ED: 2 ML/UNIT ? 5
     Route: 050
     Dates: start: 20191107, end: 20191110
  8. CARBIDOPA\LEVODOPA [Suspect]
     Active Substance: CARBIDOPA\LEVODOPA
     Dosage: MD: 8 ML, CD: 1.7 ML/HR ? 06 HRS, ED: 3 ML/UNIT ? 5
     Route: 050
     Dates: start: 20191204, end: 20191209
  9. CARBIDOPA\LEVODOPA [Suspect]
     Active Substance: CARBIDOPA\LEVODOPA
     Dosage: MD: 8 ML, CD: 1.6 ML/HR ? 16 HRS, ED: 3 ML/UNIT ? 5
     Route: 050
     Dates: start: 20191209, end: 20191216
  10. CARBIDOPA\LEVODOPA [Suspect]
     Active Substance: CARBIDOPA\LEVODOPA
     Dosage: MD: 8 ML, CD: 1.6 ML/HR ? 16 HRS, ED: 3 ML/UNIT ? 5
     Route: 050
     Dates: start: 20191227, end: 20200727
  11. CARBIDOPA\LEVODOPA [Suspect]
     Active Substance: CARBIDOPA\LEVODOPA
     Dosage: MD: 10 ML, CD: 2 ML/HR ? 16 HRS, ED: 3 ML/UNIT ? 5
     Dates: start: 20210203, end: 20210301
  12. CARBIDOPA\LEVODOPA [Suspect]
     Active Substance: CARBIDOPA\LEVODOPA
     Dosage: MD: 10 ML, CD: 2 ML/HR ? 16 HRS, ED: 3 ML/UNIT ? 5
     Dates: start: 20201228, end: 20210126
  13. CARBIDOPA\LEVODOPA [Suspect]
     Active Substance: CARBIDOPA\LEVODOPA
     Dosage: MD: 10 ML, CD: 2 ML/HR ? 16 HRS, ED: 3 ML/UNIT ? 5
     Dates: start: 20200727, end: 20201225
  14. TIPEPIDINE [Concomitant]
     Active Substance: TIPEPIDINE
     Indication: Influenza
     Dosage: 60 MILLIGRAM
     Route: 048
     Dates: start: 20200103, end: 20200108
  15. HERBALS [Concomitant]
     Active Substance: HERBALS
     Indication: Prophylaxis
     Dosage: 2.5 GRAM, EXTRACT
     Route: 048
     Dates: start: 20191105
  16. OSELTAMIVIR PHOSPHATE [Concomitant]
     Active Substance: OSELTAMIVIR PHOSPHATE
     Indication: Influenza
     Dosage: 150 MILLIGRAM
     Route: 048
     Dates: start: 20200103, end: 20200108
  17. OSELTAMIVIR PHOSPHATE [Concomitant]
     Active Substance: OSELTAMIVIR PHOSPHATE
     Indication: Influenza
     Dosage: 150 MILLIGRAM
     Route: 048
     Dates: start: 20200103, end: 20200108
  18. METHYLCOBALAMIN [Concomitant]
     Active Substance: METHYLCOBALAMIN
     Indication: Prophylaxis
     Dosage: 500 MICROGRAM
     Route: 048
  19. METHYLCOBALAMIN [Concomitant]
     Active Substance: METHYLCOBALAMIN
     Indication: Prophylaxis
     Dosage: 500 MICROGRAM
     Route: 048
     Dates: end: 20191111
  20. METHYLCOBALAMIN [Concomitant]
     Active Substance: METHYLCOBALAMIN
     Indication: Prophylaxis
     Dosage: 500 MICROGRAM
     Route: 048
     Dates: end: 20191111
  21. PITAVASTATIN CALCIUM [Concomitant]
     Active Substance: PITAVASTATIN CALCIUM
     Indication: Prophylaxis
     Dosage: 1 MILLIGRAM
     Route: 048
  22. PITAVASTATIN CALCIUM [Concomitant]
     Active Substance: PITAVASTATIN CALCIUM
     Indication: Prophylaxis
     Dosage: 1 MILLIGRAM
     Route: 048
  23. FOLIC ACID [Concomitant]
     Active Substance: FOLIC ACID
     Indication: Prophylaxis
     Dosage: 5 MILLIGRAM
     Route: 048
  24. Tokakujokito [Concomitant]
     Indication: Prophylaxis
     Dosage: 2.5 GRAM,EXTRACT
     Route: 048
     Dates: start: 20201207
  25. TEPRENONE [Concomitant]
     Active Substance: TEPRENONE
     Indication: Prophylaxis
     Dosage: 100 MILLIGRAM
     Route: 048
     Dates: end: 20200318
  26. TEPRENONE [Concomitant]
     Active Substance: TEPRENONE
     Indication: Prophylaxis
     Dosage: 100 MILLIGRAM
     Route: 048
     Dates: end: 20200318
  27. ROTIGOTINE [Suspect]
     Active Substance: ROTIGOTINE
     Indication: Parkinson^s disease
     Dosage: 4.5 MILLIGRAM
     Route: 062
     Dates: start: 20190721, end: 20200312
  28. ISTRADEFYLLINE [Concomitant]
     Active Substance: ISTRADEFYLLINE
     Indication: Parkinson^s disease
     Dosage: 20 MILLIGRAM
     Route: 048
  29. ROPINIROLE [Concomitant]
     Active Substance: ROPINIROLE
     Indication: Parkinson^s disease
     Dosage: 32 MILLIGRAM
     Route: 062
     Dates: start: 20200312, end: 20200423
  30. ROPINIROLE [Concomitant]
     Active Substance: ROPINIROLE
     Indication: Parkinson^s disease
     Dosage: 32 MILLIGRAM
     Route: 062
     Dates: start: 20200520
  31. ROPINIROLE [Concomitant]
     Active Substance: ROPINIROLE
     Indication: Parkinson^s disease
     Dosage: 24 MILLIGRAM
     Route: 062
     Dates: start: 20200423, end: 20200520
  32. AMANTADINE HYDROCHLORIDE [Concomitant]
     Active Substance: AMANTADINE HYDROCHLORIDE
     Indication: Parkinson^s disease
     Dosage: 50 MILLIGRAM
     Route: 048
     Dates: end: 20190930
  33. CARBOCYSTEINE [Concomitant]
     Active Substance: CARBOCYSTEINE
     Indication: Influenza
     Dosage: 1500 MILLIGRAM
     Route: 048
     Dates: start: 20200103, end: 20200108
  34. CARBOCYSTEINE [Concomitant]
     Active Substance: CARBOCYSTEINE
     Indication: Influenza
     Dosage: 1500 MILLIGRAM
     Route: 048
     Dates: start: 20200103, end: 20200108
  35. PREGABALIN [Suspect]
     Active Substance: PREGABALIN
     Indication: Product used for unknown indication
     Dosage: 50 MILLIGRAM
     Route: 048
     Dates: start: 20200928, end: 20210210
  36. PREGABALIN [Suspect]
     Active Substance: PREGABALIN
     Indication: Product used for unknown indication
     Dosage: 75 MILLIGRAM
     Route: 048
     Dates: start: 20200608, end: 20200928
  37. PREGABALIN [Suspect]
     Active Substance: PREGABALIN
     Indication: Product used for unknown indication
     Dosage: 50 MILLIGRAM
     Route: 048
     Dates: start: 20200427, end: 20200608
  38. DIPHENHYDRAMINE HYDROCHLORIDE\HYDROCORTISONE ACETATE\NEOMYCIN SULFATE [Concomitant]
     Active Substance: DIPHENHYDRAMINE HYDROCHLORIDE\HYDROCORTISONE ACETATE\NEOMYCIN SULFATE
     Indication: Prophylaxis
     Dosage: 10 G
     Route: 061
     Dates: start: 20191205, end: 20200106
  39. DIPHENHYDRAMINE HYDROCHLORIDE\HYDROCORTISONE ACETATE\NEOMYCIN SULFATE [Concomitant]
     Active Substance: DIPHENHYDRAMINE HYDROCHLORIDE\HYDROCORTISONE ACETATE\NEOMYCIN SULFATE
     Indication: Prophylaxis
     Dosage: 10 G
     Route: 061
     Dates: start: 20191205, end: 20200106
  40. CARBIDOPA\LEVODOPA [Concomitant]
     Active Substance: CARBIDOPA\LEVODOPA
     Indication: Parkinson^s disease
     Dosage: LAST ADMIN DATE 2019
     Route: 048
     Dates: start: 20190709
  41. CARBIDOPA\LEVODOPA [Concomitant]
     Active Substance: CARBIDOPA\LEVODOPA
     Indication: Parkinson^s disease
     Dosage: 1000 MILLIGRAM
     Route: 048
     Dates: start: 20191216, end: 20191227
  42. CARBIDOPA\LEVODOPA [Concomitant]
     Active Substance: CARBIDOPA\LEVODOPA
     Indication: Parkinson^s disease
     Dosage: 1000 MILLIGRAM
     Route: 048
     Dates: start: 20191021, end: 20191106
  43. CARBIDOPA\LEVODOPA [Concomitant]
     Active Substance: CARBIDOPA\LEVODOPA
     Indication: Parkinson^s disease
     Dosage: 1000 MILLIGRAM
     Route: 048
     Dates: start: 20190914, end: 20190917
  44. HERBALS [Concomitant]
     Active Substance: HERBALS
     Indication: Product used for unknown indication
     Dosage: 2.5 G/SACHET
     Route: 048
     Dates: start: 20200416
  45. LUBIPROSTONE [Concomitant]
     Active Substance: LUBIPROSTONE
     Indication: Constipation
     Dosage: 24 UG
     Route: 048
     Dates: start: 20200323, end: 20200402
  46. LUBIPROSTONE [Concomitant]
     Active Substance: LUBIPROSTONE
     Indication: Constipation
     Dosage: 24 UG
     Route: 048
     Dates: start: 20200323, end: 20200402
  47. ZONISAMIDE [Concomitant]
     Active Substance: ZONISAMIDE
     Indication: Parkinson^s disease
     Dosage: 25 MILLIGRAM
     Route: 048
     Dates: start: 20210407, end: 20210419
  48. CARBIDOPA\LEVODOPA [Concomitant]
     Active Substance: CARBIDOPA\LEVODOPA
     Indication: Parkinson^s disease
     Dosage: TIME INTERVAL: 0.16666667 DAYS: 1200 MILLIGRAM?FORM STRENGTH: 100 MILLIGRAM
     Route: 048
     Dates: start: 20210126, end: 20210203
  49. CARBIDOPA\LEVODOPA [Concomitant]
     Active Substance: CARBIDOPA\LEVODOPA
     Indication: Parkinson^s disease
     Dosage: TIME INTERVAL: 0.16666667 DAYS: 1200 MILLIGRAM?FORM STRENGTH: 100 MILLIGRAM
     Route: 048
     Dates: start: 20210301
  50. CARBIDOPA\LEVODOPA [Concomitant]
     Active Substance: CARBIDOPA\LEVODOPA
     Indication: Parkinson^s disease
     Dosage: TIME INTERVAL: 0.16666667 DAYS: 1200 MILLIGRAM?FORM STRENGTH: 100 MILLIGRAM
     Route: 048
     Dates: start: 20201225, end: 20201228

REACTIONS (9)
  - Myelopathy [Recovering/Resolving]
  - Dyskinesia [Recovering/Resolving]
  - Dizziness [Recovering/Resolving]
  - Upper respiratory tract inflammation [Recovered/Resolved]
  - Influenza [Recovered/Resolved]
  - Malaise [Unknown]
  - Stoma site cellulitis [Recovered/Resolved]
  - Stoma site discharge [Not Recovered/Not Resolved]
  - Drug ineffective [Unknown]

NARRATIVE: CASE EVENT DATE: 20190101
